FAERS Safety Report 8988420 (Version 1)
Quarter: 2012Q4

REPORT INFORMATION
  Report Type: Spontaneous
  Country: US (occurrence: None)
  Receive Date: 20121221
  Receipt Date: 20121221
  Transmission Date: 20130627
  Serious: Yes (Life-Threatening)
  Sender: FDA-Public Use
  Company Number: None

PATIENT
  Age: 62 Year
  Sex: Male
  Weight: 100.9 kg

DRUGS (1)
  1. OXYCODONE [Suspect]
     Indication: PAIN
     Route: 048
     Dates: start: 20121110, end: 20121112

REACTIONS (6)
  - Unresponsive to stimuli [None]
  - Hyperhidrosis [None]
  - Hypoglycaemia [None]
  - Respiratory depression [None]
  - Heart rate decreased [None]
  - Feeling hot [None]
